FAERS Safety Report 16915206 (Version 2)
Quarter: 2019Q4

REPORT INFORMATION
  Report Type: Spontaneous
  Country: JP (occurrence: JP)
  Receive Date: 20191014
  Receipt Date: 20191129
  Transmission Date: 20200122
  Serious: Yes (Death, Hospitalization)
  Sender: FDA-Public Use
  Company Number: JP-ASTRAZENECA-2019SF00755

PATIENT
  Age: 29778 Day
  Sex: Female
  Weight: 51 kg

DRUGS (12)
  1. PREDONINE [Suspect]
     Active Substance: PREDNISOLONE
     Dosage: 30.0MG UNKNOWN
     Route: 048
     Dates: start: 20190802, end: 20190807
  2. TAKECAB [Concomitant]
     Active Substance: VONOPRAZAN FUMURATE
     Indication: GASTRITIS
     Route: 048
     Dates: start: 20190711, end: 20190711
  3. TAGRISSO [Suspect]
     Active Substance: OSIMERTINIB
     Indication: NON-SMALL CELL LUNG CANCER
     Route: 048
     Dates: start: 20190228, end: 20190711
  4. ADALAT CC [Concomitant]
     Active Substance: NIFEDIPINE
     Indication: HYPERTENSION
     Dosage: NUMBER OF SEPARATE DOSAGES UNKNOWN20.0MG UNKNOWN
     Route: 048
     Dates: start: 20190202, end: 20190418
  5. DENOTAS [Concomitant]
     Active Substance: CALCIUM CARBONATE\CHOLECALCIFEROL\MAGNESIUM CARBONATE
     Indication: METASTASES TO BONE
     Dosage: DOSE UNKNOWN
     Route: 048
     Dates: start: 20190222, end: 20190808
  6. RANMARK [Concomitant]
     Active Substance: DENOSUMAB
     Dosage: DOSE UNKNOWN
     Route: 065
  7. PREDONINE [Suspect]
     Active Substance: PREDNISOLONE
     Dosage: 50.0MG UNKNOWN
     Route: 042
     Dates: start: 20190711, end: 20190717
  8. MEILAX [Concomitant]
     Active Substance: ETHYL LOFLAZEPATE
     Indication: ANXIETY DISORDER
     Route: 048
     Dates: start: 20190222, end: 20190808
  9. AMLODIPINE [Concomitant]
     Active Substance: AMLODIPINE BESYLATE
     Indication: HYPERTENSION
     Route: 048
     Dates: start: 20190419, end: 20190808
  10. PREDONINE [Suspect]
     Active Substance: PREDNISOLONE
     Dosage: 30.0MG UNKNOWN
     Route: 048
     Dates: start: 20190718, end: 20190729
  11. PREDONINE [Suspect]
     Active Substance: PREDNISOLONE
     Dosage: 20.0MG UNKNOWN
     Route: 048
     Dates: start: 20190730, end: 20190801
  12. PREDONINE [Suspect]
     Active Substance: PREDNISOLONE
     Dosage: 40.0MG UNKNOWN
     Route: 042
     Dates: start: 20190808, end: 20190811

REACTIONS (5)
  - Interstitial lung disease [Recovering/Resolving]
  - Herpes zoster [Recovering/Resolving]
  - Cardiac failure congestive [Recovering/Resolving]
  - Pneumonia [Recovering/Resolving]
  - Malignant neoplasm progression [Fatal]

NARRATIVE: CASE EVENT DATE: 20190621
